FAERS Safety Report 5119160-2 (Version None)
Quarter: 2006Q3

REPORT INFORMATION
  Report Type: 
  Country: None (occurrence: None)
  Receive Date: 20060929
  Receipt Date: 20060929
  Transmission Date: 20061208
  Serious: Yes (Life-Threatening, Other)
  Sender: FDA-Public Use
  Company Number: None

PATIENT
  Age: 91 Year
  Sex: Male

DRUGS (2)
  1. CEFUROXIME [Suspect]
  2. CEFTRIAXONE [Suspect]

REACTIONS (1)
  - CLOSTRIDIUM DIFFICILE COLITIS [None]
